FAERS Safety Report 15251006 (Version 1)
Quarter: 2018Q3

REPORT INFORMATION
  Report Type: Spontaneous
  Country: US (occurrence: US)
  Receive Date: 20180716
  Receipt Date: 20180716
  Transmission Date: 20181010
  Serious: No
  Sender: FDA-Public Use
  Company Number: None

PATIENT
  Age: 50 Year
  Sex: Male

DRUGS (1)
  1. NORVIR [Suspect]
     Active Substance: RITONAVIR

REACTIONS (3)
  - Inability to afford medication [None]
  - Drug dose omission [None]
  - Therapy cessation [None]

NARRATIVE: CASE EVENT DATE: 20180715
